FAERS Safety Report 9353306 (Version 4)
Quarter: 2013Q4

REPORT INFORMATION
  Report Type: Report from Study
  Country: GB (occurrence: GB)
  Receive Date: 20130618
  Receipt Date: 20131014
  Transmission Date: 20140711
  Serious: Yes (Death, Hospitalization)
  Sender: FDA-Public Use
  Company Number: GB-ROCHE-1238024

PATIENT
  Sex: Female
  Weight: 44 kg

DRUGS (12)
  1. RANIBIZUMAB [Suspect]
     Indication: AGE-RELATED MACULAR DEGENERATION
     Route: 050
     Dates: start: 20090709, end: 20121107
  2. ZOPICLONE [Concomitant]
  3. SALBUTAMOL [Concomitant]
  4. ATROVENT [Concomitant]
  5. QUININE [Concomitant]
  6. OMEPRAZOLE [Concomitant]
  7. UNIPHYLLIN [Concomitant]
  8. FUROSEMIDE [Concomitant]
  9. SERETIDE [Concomitant]
  10. PREDNISOLON [Concomitant]
  11. DIAMORPHINE [Concomitant]
  12. GLYCOPYRROLATE [Concomitant]

REACTIONS (2)
  - Chronic obstructive pulmonary disease [Fatal]
  - Respiratory failure [Unknown]
